FAERS Safety Report 9548360 (Version 1)
Quarter: 2013Q3

REPORT INFORMATION
  Report Type: Spontaneous
  Country: TN (occurrence: None)
  Receive Date: 20130920
  Receipt Date: 20130920
  Transmission Date: 20140515
  Serious: Yes (Other)
  Sender: FDA-Public Use
  Company Number: INT_00299_2013

PATIENT
  Sex: 0

DRUGS (1)
  1. CEFAZOLIN [Suspect]
     Indication: PRODUCT USED FOR UNKNOWN INDICATION
     Dosage: (DF) (UNKNOWN UNTIL NOT CONTINUING)?

REACTIONS (1)
  - Acute generalised exanthematous pustulosis [None]
